FAERS Safety Report 6790806-6 (Version None)
Quarter: 2010Q2

REPORT INFORMATION
  Report Type: 
  Country: None (occurrence: None)
  Receive Date: 20100624
  Receipt Date: 20100611
  Transmission Date: 20101027
  Serious: Yes (Life-Threatening, Other)
  Sender: FDA-Public Use
  Company Number: GB-ELI_LILLY_AND_COMPANY-GB201006003168

PATIENT
  Age: 43 Year
  Sex: Male

DRUGS (1)
  1. OLANZAPINE [Suspect]
     Indication: SCHIZOPHRENIA
     Dosage: 10 MG, UNK
     Route: 048

REACTIONS (1)
  - DEEP VEIN THROMBOSIS [None]
